FAERS Safety Report 4872847-9 (Version None)
Quarter: 2005Q4

REPORT INFORMATION
  Report Type: 
  Country: None (occurrence: None)
  Receive Date: 20051230
  Receipt Date: 20051207
  Transmission Date: 20060501
  Serious: Yes (Hospitalization)
  Sender: FDA-Public Use
  Company Number: 2005BH002173

PATIENT
  Age: 51 Year
  Sex: Male
  Weight: 91.4 kg

DRUGS (8)
  1. ADVATE (OCTOCOG ALFA) [Suspect]
     Indication: FACTOR VIII DEFICIENCY
     Dosage: SEE IMAGE
     Route: 042
     Dates: start: 20050422, end: 20050915
  2. ADVATE (OCTOCOG ALFA) [Suspect]
     Indication: FACTOR VIII DEFICIENCY
     Dosage: SEE IMAGE
     Route: 042
     Dates: start: 20050919, end: 20050919
  3. ADVATE (OCTOCOG ALFA) [Suspect]
     Indication: FACTOR VIII DEFICIENCY
     Dosage: SEE IMAGE
     Route: 042
     Dates: start: 20050916, end: 20050927
  4. ADVATE (OCTOCOG ALFA) [Suspect]
  5. TRAMADOL HCL [Concomitant]
  6. OMEPRAZOLE [Concomitant]
  7. DOTHIEPIN HYDROCHLORIDE [Concomitant]
  8. GAVISCON [Concomitant]

REACTIONS (1)
  - DRUG HYPERSENSITIVITY [None]
